FAERS Safety Report 7480691-1 (Version None)
Quarter: 2011Q2

REPORT INFORMATION
  Report Type: 
  Country: None (occurrence: None)
  Receive Date: 20110505
  Receipt Date: 20110426
  Transmission Date: 20111010
  Serious: Yes (Disabling)
  Sender: FDA-Public Use
  Company Number: WAES 1104FRA00142

PATIENT
  Age: 48 Year
  Sex: Male

DRUGS (4)
  1. TAB RALTEGRAVIR POTASSIUM [Suspect]
     Indication: HIV INFECTION
     Dosage: 400 MG BID, PO
     Route: 048
     Dates: start: 20110112, end: 20110307
  2. NORVIR [Concomitant]
  3. ATAZANAVIR [Concomitant]
  4. MARAVIROC [Concomitant]

REACTIONS (2)
  - ARTHRALGIA [None]
  - IMPAIRED WORK ABILITY [None]
